FAERS Safety Report 9411948 (Version 2)
Quarter: 2013Q3

REPORT INFORMATION
  Report Type: Report from Study
  Country: US (occurrence: US)
  Receive Date: 20130722
  Receipt Date: 20130808
  Transmission Date: 20140515
  Serious: Yes (Death, Hospitalization)
  Sender: FDA-Public Use
  Company Number: PHEH2011US013305

PATIENT
  Sex: Female
  Weight: 118 kg

DRUGS (4)
  1. TOBI [Suspect]
     Indication: PNEUMONIA PSEUDOMONAL
     Dosage: 300 MG, BID
     Dates: start: 20110401
  2. TOBI [Suspect]
     Dosage: UNK
     Dates: start: 20110812
  3. TOBI [Suspect]
     Dosage: 300 MG, BID EVERY OTHER MONTH
     Dates: start: 201302, end: 201304
  4. ALBUTEROL [Concomitant]
     Dosage: UNK BID

REACTIONS (3)
  - Pneumonia pseudomonal [Fatal]
  - Bronchiectasis [Unknown]
  - Chronic obstructive pulmonary disease [Unknown]
